FAERS Safety Report 8411270-7 (Version None)
Quarter: 2012Q2

REPORT INFORMATION
  Report Type: 
  Country: None (occurrence: None)
  Receive Date: 20120605
  Receipt Date: 20120529
  Transmission Date: 20120825
  Serious: Yes (Other)
  Sender: FDA-Public Use
  Company Number: NZ-ABBOTT-10P-118-0681929-00

PATIENT
  Sex: Female
  Weight: 90 kg

DRUGS (2)
  1. HUMIRA [Suspect]
     Indication: PSORIATIC ARTHROPATHY
     Dates: start: 20090901
  2. HUMIRA [Suspect]
     Indication: PSORIASIS
     Dosage: 80 MG LOADING DOSE
     Dates: start: 20090902, end: 20090902

REACTIONS (4)
  - BREAST CANCER IN SITU [None]
  - HIATUS HERNIA [None]
  - UMBILICAL HERNIA [None]
  - NIPPLE EXUDATE BLOODY [None]
